FAERS Safety Report 4792392-9 (Version None)
Quarter: 2005Q4

REPORT INFORMATION
  Report Type: 
  Country: None (occurrence: None)
  Receive Date: 20051010
  Receipt Date: 20050428
  Transmission Date: 20060501
  Serious: Yes (Other)
  Sender: FDA-Public Use
  Company Number: 2005SE02565

PATIENT
  Age: 86 Year
  Sex: Female

DRUGS (8)
  1. BLOPRESS [Suspect]
     Indication: HYPERTENSION
     Route: 048
  2. PROMOTIN [Concomitant]
     Indication: RETINAL HAEMORRHAGE
     Route: 048
     Dates: start: 20030916, end: 20040324
  3. ADONA {AC-17} [Concomitant]
     Indication: RETINAL HAEMORRHAGE
     Route: 048
     Dates: start: 20030916, end: 20040324
  4. XALATAN [Concomitant]
     Indication: INTRAOCULAR PRESSURE INCREASED
     Route: 047
     Dates: start: 20031009
  5. DIAMOX [Concomitant]
     Indication: INTRAOCULAR PRESSURE INCREASED
     Route: 048
     Dates: start: 20031009, end: 20031028
  6. DIAMOX [Concomitant]
     Route: 048
     Dates: start: 20031029
  7. DETANTOL [Concomitant]
     Indication: INTRAOCULAR PRESSURE INCREASED
     Route: 047
     Dates: start: 20031112
  8. HYPADIL [Concomitant]
     Indication: INTRAOCULAR PRESSURE INCREASED
     Route: 047
     Dates: start: 20031022

REACTIONS (2)
  - BLOOD PRESSURE INCREASED [None]
  - INTRAOCULAR PRESSURE INCREASED [None]
